FAERS Safety Report 10385308 (Version 7)
Quarter: 2017Q3

REPORT INFORMATION
  Report Type: Spontaneous
  Country: KR (occurrence: KR)
  Receive Date: 20140814
  Receipt Date: 20170807
  Transmission Date: 20171127
  Serious: Yes (Hospitalization)
  Sender: FDA-Public Use
  Company Number: KR-CELGENEUS-286-50794-14074498

PATIENT
  Age: 47 Year
  Sex: Female
  Weight: 49.4 kg

DRUGS (6)
  1. VIDAZA [Suspect]
     Active Substance: AZACITIDINE
     Route: 058
     Dates: start: 20140902, end: 20141009
  2. ELTROMBOPAG [Suspect]
     Active Substance: ELTROMBOPAG
     Dosage: 200 MILLIGRAM
     Route: 048
     Dates: start: 20140630
  3. ELTROMBOPAG [Suspect]
     Active Substance: ELTROMBOPAG
     Indication: MYELODYSPLASTIC SYNDROME
     Dosage: 100 MILLIGRAM
     Route: 048
     Dates: start: 20140630, end: 20140825
  4. ELTROMBOPAG [Suspect]
     Active Substance: ELTROMBOPAG
     Indication: THROMBOCYTOPENIA
     Dosage: 50 MILLIGRAM
     Route: 048
     Dates: start: 20140728, end: 20140929
  5. ELTROMBOPAG [Suspect]
     Active Substance: ELTROMBOPAG
     Dosage: 150 MILLIGRAM
     Route: 048
     Dates: start: 20140930, end: 20141217
  6. VIDAZA [Suspect]
     Active Substance: AZACITIDINE
     Indication: MYELODYSPLASTIC SYNDROME
     Route: 058
     Dates: start: 20140630, end: 20140708

REACTIONS (6)
  - Febrile neutropenia [Recovered/Resolved]
  - Colitis [Recovered/Resolved]
  - Febrile neutropenia [Recovered/Resolved]
  - Herpes oesophagitis [Recovered/Resolved]
  - Febrile neutropenia [Recovered/Resolved]
  - Febrile neutropenia [Recovered/Resolved]

NARRATIVE: CASE EVENT DATE: 20140722
